FAERS Safety Report 16893323 (Version 1)
Quarter: 2019Q4

REPORT INFORMATION
  Report Type: Spontaneous
  Country: IT (occurrence: IT)
  Receive Date: 20191008
  Receipt Date: 20191008
  Transmission Date: 20200122
  Serious: Yes (Other)
  Sender: FDA-Public Use
  Company Number: IT-ASTRAZENECA-2019SF39067

PATIENT
  Age: 76 Year
  Sex: Female

DRUGS (4)
  1. GABAPENTIN. [Suspect]
     Active Substance: GABAPENTIN
     Route: 065
  2. SEROQUEL [Suspect]
     Active Substance: QUETIAPINE FUMARATE
     Dosage: 25.0MG UNKNOWN
     Route: 048
  3. EFEXOR [Suspect]
     Active Substance: VENLAFAXINE HYDROCHLORIDE
     Dosage: 75.0MG UNKNOWN
     Route: 065
  4. RIVOTRIL [Suspect]
     Active Substance: CLONAZEPAM
     Dosage: 2.5MG/ML UNKNOWN
     Route: 065

REACTIONS (2)
  - Psychomotor retardation [Recovering/Resolving]
  - Sopor [Recovering/Resolving]

NARRATIVE: CASE EVENT DATE: 20190922
